FAERS Safety Report 17895226 (Version 1)
Quarter: 2020Q2

REPORT INFORMATION
  Report Type: Spontaneous
  Country: US (occurrence: US)
  Receive Date: 20200614
  Receipt Date: 20200614
  Transmission Date: 20200714
  Serious: Yes (Other)
  Sender: FDA-Public Use
  Company Number: None

PATIENT
  Age: 67 Year
  Weight: 133 kg

DRUGS (17)
  1. LEVOCETIRIZINE DIHYDROCHLORIDE. [Suspect]
     Active Substance: LEVOCETIRIZINE DIHYDROCHLORIDE
     Indication: SEASONAL ALLERGY
     Dosage: ?          QUANTITY:1 TABLET(S);?
     Route: 048
     Dates: start: 20200520, end: 20200526
  2. PEPCID [Concomitant]
     Active Substance: FAMOTIDINE
  3. KCL [Concomitant]
     Active Substance: POTASSIUM CHLORIDE
  4. CELEBREX [Concomitant]
     Active Substance: CELECOXIB
  5. LEVOCETIRIZINE DIHYDROCHLORIDE. [Suspect]
     Active Substance: LEVOCETIRIZINE DIHYDROCHLORIDE
     Indication: HYPERSENSITIVITY
     Dosage: ?          QUANTITY:1 TABLET(S);?
     Route: 048
     Dates: start: 20200520, end: 20200526
  6. METOPROLAL [Concomitant]
  7. METFORMIN [Concomitant]
     Active Substance: METFORMIN HYDROCHLORIDE
  8. GABAPENTIN. [Concomitant]
     Active Substance: GABAPENTIN
  9. HYDRODIURIL [Concomitant]
     Active Substance: HYDROCHLOROTHIAZIDE
  10. NEXIUM [Concomitant]
     Active Substance: ESOMEPRAZOLE MAGNESIUM
  11. NORVASC [Concomitant]
     Active Substance: AMLODIPINE BESYLATE
  12. LUNESTA [Concomitant]
     Active Substance: ESZOPICLONE
  13. AVAPRO [Concomitant]
     Active Substance: IRBESARTAN
  14. VIT D [Concomitant]
     Active Substance: VITAMIN D NOS
  15. VELAFLOXINE [Concomitant]
  16. VITAMIN B12 [Concomitant]
     Active Substance: CYANOCOBALAMIN
  17. PROBIOTIC [Concomitant]
     Active Substance: PROBIOTICS NOS

REACTIONS (3)
  - Dizziness postural [None]
  - Fall [None]
  - Feeling abnormal [None]

NARRATIVE: CASE EVENT DATE: 20200525
